FAERS Safety Report 8861836 (Version 1)
Quarter: 2012Q4

REPORT INFORMATION
  Report Type: Spontaneous
  Country: AU (occurrence: None)
  Receive Date: 20121023
  Receipt Date: 20121023
  Transmission Date: 20130627
  Serious: Yes (Hospitalization, Other)
  Sender: FDA-Public Use
  Company Number: AUR-APL-2012-04486

PATIENT
  Age: 45 Year
  Sex: Male

DRUGS (2)
  1. RISPERIDONE (RISPERIDONE) [Suspect]
     Route: 048
  2. PALIPERIDONE PALMITATE [Suspect]

REACTIONS (3)
  - Neutropenia [None]
  - Lymphopenia [None]
  - Blood disorder [None]
